FAERS Safety Report 6415501-4 (Version None)
Quarter: 2009Q4

REPORT INFORMATION
  Report Type: 
  Country: None (occurrence: None)
  Receive Date: 20091027
  Receipt Date: 20091019
  Transmission Date: 20100525
  Serious: No
  Sender: FDA-Public Use
  Company Number: US-B.I. PHARMACEUTICALS,INC./RIDGEFIELD-2009-BP-12241BP

PATIENT
  Age: 69 Year
  Sex: Female

DRUGS (2)
  1. COMBIVENT [Suspect]
     Indication: ASTHMA
     Dosage: 8 PUF
     Route: 055
     Dates: start: 20091017, end: 20091017
  2. LEVAQUIN [Concomitant]
     Indication: PNEUMONIA
     Dates: start: 20091017

REACTIONS (6)
  - CHEILITIS [None]
  - DRY EYE [None]
  - DRY MOUTH [None]
  - DYSGEUSIA [None]
  - LIP DRY [None]
  - VISION BLURRED [None]
